FAERS Safety Report 5571949-1 (Version None)
Quarter: 2007Q4

REPORT INFORMATION
  Report Type: 
  Country: None (occurrence: None)
  Receive Date: 20071221
  Receipt Date: 20071218
  Transmission Date: 20080405
  Serious: Yes (Death)
  Sender: FDA-Public Use
  Company Number: GB-ABBOTT-07P-167-0430719-00

PATIENT
  Sex: Female
  Weight: 46 kg

DRUGS (5)
  1. HUMIRA [Suspect]
     Indication: RHEUMATOID ARTHRITIS
     Route: 058
     Dates: start: 20040324, end: 20070617
  2. SULFASALAZINE [Concomitant]
     Indication: DRUG USE FOR UNKNOWN INDICATION
  3. CELECOXIB [Concomitant]
     Indication: DRUG USE FOR UNKNOWN INDICATION
  4. FERROUS SULFATE TAB [Concomitant]
     Indication: DRUG USE FOR UNKNOWN INDICATION
  5. LANSOPRAZOLE [Concomitant]
     Indication: DRUG USE FOR UNKNOWN INDICATION

REACTIONS (4)
  - LEG AMPUTATION [None]
  - OSTEOARTHRITIS [None]
  - PERIPHERAL VASCULAR DISORDER [None]
  - RHEUMATOID ARTHRITIS [None]
